FAERS Safety Report 19216743 (Version 1)
Quarter: 2021Q2

REPORT INFORMATION
  Report Type: Spontaneous
  Country: US (occurrence: US)
  Receive Date: 20210504
  Receipt Date: 20210504
  Transmission Date: 20210717
  Serious: Yes (Hospitalization)
  Sender: FDA-Public Use
  Company Number: None

PATIENT
  Age: 65 Year
  Sex: Female

DRUGS (18)
  1. LEVOTHYROXIN [Concomitant]
     Active Substance: LEVOTHYROXINE
  2. POT CHLORIDE [Concomitant]
     Active Substance: POTASSIUM CHLORIDE
  3. ROSUVASTATIN. [Concomitant]
     Active Substance: ROSUVASTATIN
  4. VALACYCLOVIR [Concomitant]
     Active Substance: VALACYCLOVIR HYDROCHLORIDE
  5. REPATHA [Suspect]
     Active Substance: EVOLOCUMAB
     Indication: TYPE IIA HYPERLIPIDAEMIA
     Dosage: ?          OTHER FREQUENCY:Q14DAYS ;?
     Route: 058
     Dates: start: 20181002
  6. FUROSEMIDE. [Concomitant]
     Active Substance: FUROSEMIDE
  7. NITROSTAT [Concomitant]
     Active Substance: NITROGLYCERIN
  8. ADDERALL XR [Concomitant]
     Active Substance: AMPHETAMINE ASPARTATE\AMPHETAMINE SULFATE\DEXTROAMPHETAMINE SACCHARATE\DEXTROAMPHETAMINE SULFATE
  9. CLOOPIDOGREL [Concomitant]
  10. CRESTOR [Concomitant]
     Active Substance: ROSUVASTATIN CALCIUM
  11. METOPROL SUC [Concomitant]
  12. VIT D [Concomitant]
     Active Substance: VITAMIN D NOS
  13. AMPHET/DECTR [Concomitant]
  14. ASPIRIN. [Concomitant]
     Active Substance: ASPIRIN
  15. ASPIRIN. [Concomitant]
     Active Substance: ASPIRIN
  16. METFORMIN [Concomitant]
     Active Substance: METFORMIN HYDROCHLORIDE
  17. METHYLPRED [Concomitant]
     Active Substance: METHYLPREDNISOLONE
  18. FENOFIBRATE. [Concomitant]
     Active Substance: FENOFIBRATE

REACTIONS (1)
  - Cardiac operation [None]

NARRATIVE: CASE EVENT DATE: 20210430
